FAERS Safety Report 15694756 (Version 22)
Quarter: 2022Q3

REPORT INFORMATION
  Report Type: Spontaneous
  Country: GB (occurrence: GB)
  Receive Date: 20181206
  Receipt Date: 20220922
  Transmission Date: 20221026
  Serious: Yes (Hospitalization, Other)
  Sender: FDA-Public Use
  Company Number: GB-MYLANLABS-2018M1087643

PATIENT
  Age: 24 Year
  Sex: Male

DRUGS (52)
  1. OLANZAPINE [Suspect]
     Active Substance: OLANZAPINE
     Indication: Schizophrenia
     Dosage: UNK UNK, UNKNOWN
     Route: 065
     Dates: start: 201801
  2. OLANZAPINE [Suspect]
     Active Substance: OLANZAPINE
     Dosage: UNK UNK, UNKNOWN
     Route: 065
     Dates: start: 201811
  3. OLANZAPINE [Suspect]
     Active Substance: OLANZAPINE
     Dosage: UNK UNK, UNKNOWN
     Route: 065
     Dates: start: 20181130
  4. OLANZAPINE [Suspect]
     Active Substance: OLANZAPINE
     Dosage: UNK UNK, UNKNOWN
     Route: 065
  5. CLOZARIL [Suspect]
     Active Substance: CLOZAPINE
     Indication: Schizophrenia
     Dosage: 1 DOSAGE FORM, DAILY
     Route: 048
     Dates: start: 20181115, end: 20181231
  6. CLOZARIL [Suspect]
     Active Substance: CLOZAPINE
     Dosage: UNK UNK, UNKNOWN
     Route: 048
     Dates: start: 20181130
  7. CLOZARIL [Suspect]
     Active Substance: CLOZAPINE
     Dosage: 1 DOSAGE FORM, DAILY
     Route: 048
     Dates: start: 20181212, end: 20181231
  8. CLOZARIL [Suspect]
     Active Substance: CLOZAPINE
     Dosage: 1 DOSAGE FORM, DAILY
     Route: 048
     Dates: start: 20181231
  9. CLOZARIL [Suspect]
     Active Substance: CLOZAPINE
     Dosage: 1 DOSAGE FORM, DAILY
     Route: 048
     Dates: start: 20191120, end: 20191202
  10. CLOZARIL [Suspect]
     Active Substance: CLOZAPINE
     Dosage: UNK UNK, UNKNOWN
     Route: 065
     Dates: start: 20211231
  11. CLOZARIL [Suspect]
     Active Substance: CLOZAPINE
     Dosage: UNK UNK, UNKNOWN
     Route: 065
     Dates: start: 20181130
  12. CLOZARIL [Suspect]
     Active Substance: CLOZAPINE
     Dosage: UNK UNK, UNKNOWN
     Route: 065
     Dates: start: 20191202
  13. CLOZARIL [Suspect]
     Active Substance: CLOZAPINE
     Dosage: UNK UNK, UNKNOWN
     Route: 065
     Dates: start: 201811
  14. CLONAZEPAM [Concomitant]
     Active Substance: CLONAZEPAM
     Indication: Product used for unknown indication
     Dosage: 2.5 ML, QID
     Route: 048
  15. CLONAZEPAM [Concomitant]
     Active Substance: CLONAZEPAM
     Dosage: 2.5 ML, OTHER (EVERY 4 DAYS (Q4D)
     Route: 048
  16. CLONAZEPAM [Concomitant]
     Active Substance: CLONAZEPAM
     Dosage: 10 ML, DAILY (2.5 MILLILITER, QID)
     Route: 048
     Dates: start: 201811
  17. CLONAZEPAM [Concomitant]
     Active Substance: CLONAZEPAM
     Dosage: 2.5 ML, DAILY
     Route: 048
  18. CLONAZEPAM [Concomitant]
     Active Substance: CLONAZEPAM
     Dosage: 40 ML, DAILY
     Route: 065
  19. CLONAZEPAM [Concomitant]
     Active Substance: CLONAZEPAM
     Dosage: 15 ML, DAILY
     Route: 005
  20. CLONAZEPAM [Concomitant]
     Active Substance: CLONAZEPAM
     Dosage: UNK UNK, DAILY
     Route: 005
  21. QUETIAPINE [Concomitant]
     Active Substance: QUETIAPINE
     Indication: Product used for unknown indication
     Dosage: 10 ML, DAILY
     Route: 065
  22. QUETIAPINE [Concomitant]
     Active Substance: QUETIAPINE
     Dosage: 20 MMOL, DAILY PM
     Route: 065
  23. QUETIAPINE [Concomitant]
     Active Substance: QUETIAPINE
     Dosage: 10 ML, EACH MORNING
     Route: 065
  24. QUETIAPINE [Concomitant]
     Active Substance: QUETIAPINE
     Dosage: 20 MILLILITER, QD
     Route: 065
  25. LITHIUM [Concomitant]
     Active Substance: LITHIUM
     Indication: Product used for unknown indication
     Dosage: 15 ML (600MG), DAILY
     Route: 005
  26. LITHIUM [Concomitant]
     Active Substance: LITHIUM
     Dosage: 1 DF, QD (PM)
     Route: 005
  27. LITHIUM [Concomitant]
     Active Substance: LITHIUM
     Dosage: 1 DF, QD (PM)
     Route: 005
  28. LITHIUM [Concomitant]
     Active Substance: LITHIUM
     Dosage: 15 MILLILITER (600MG), HS
     Route: 005
  29. VALPROATE SODIUM [Concomitant]
     Active Substance: VALPROATE SODIUM
     Indication: Product used for unknown indication
     Dosage: UNK, DAILY (PM)
     Route: 065
  30. VALPROATE SODIUM [Concomitant]
     Active Substance: VALPROATE SODIUM
     Dosage: UNK, DAILY (AM)
     Route: 065
  31. VALPROATE SODIUM [Concomitant]
     Active Substance: VALPROATE SODIUM
     Dosage: 25 MMOL, DAILY (PM)
     Route: 065
  32. VALPROATE SODIUM [Concomitant]
     Active Substance: VALPROATE SODIUM
     Dosage: 18.75 MMOL, DAILY
     Route: 065
  33. VALPROATE SODIUM [Concomitant]
     Active Substance: VALPROATE SODIUM
     Dosage: 18.75 MMOL, DAILY (AM)
     Route: 065
  34. VALPROATE SODIUM [Concomitant]
     Active Substance: VALPROATE SODIUM
     Dosage: 25 MMOL, DAILY
     Route: 065
  35. VALPROATE SODIUM [Concomitant]
     Active Substance: VALPROATE SODIUM
     Dosage: UNK UNK, DAILY
     Route: 065
  36. LI LIQUID [Concomitant]
     Indication: Product used for unknown indication
     Dosage: 1 DOSAGE FORM, DAILY (PM)
     Route: 005
  37. LI LIQUID [Concomitant]
     Dosage: 15 ML, DAILY (15ML (600 MG) NOCTE)
     Route: 005
  38. LI LIQUID [Concomitant]
     Dosage: 1 DOSAGE FORM, DAILY (PM)
     Route: 005
  39. LI LIQUID [Concomitant]
     Dosage: 15 ML, QD (600 MG),
     Route: 005
  40. LI LIQUID [Concomitant]
     Dosage: UNK UNK, DAILY (PM)
     Route: 005
  41. LI LIQUID [Concomitant]
     Dosage: UNK UNK, UNKNOWN (PM)
     Route: 005
  42. LITHIUM CITRATE [Concomitant]
     Active Substance: LITHIUM CITRATE
     Indication: Product used for unknown indication
     Dosage: UNK
     Route: 005
  43. LITHIUM CITRATE [Concomitant]
     Active Substance: LITHIUM CITRATE
     Dosage: UNK
     Route: 065
  44. LITHIUM CITRATE [Concomitant]
     Active Substance: LITHIUM CITRATE
     Dosage: 1 DOSAGE FORM, DAILY
     Route: 005
  45. LITHIUM CITRATE [Concomitant]
     Active Substance: LITHIUM CITRATE
     Dosage: 1 DOSAGE FORM, DAILY (PM)
     Route: 005
  46. LITHIUM CITRATE [Concomitant]
     Active Substance: LITHIUM CITRATE
     Dosage: 1 DOSAGE FORM, DAILY (PM)
     Route: 005
  47. LITHIUM CITRATE [Concomitant]
     Active Substance: LITHIUM CITRATE
     Dosage: 15 ML, DAILY (15 ML (600MG), DAILY)
     Route: 005
  48. LITHIUM CITRATE [Concomitant]
     Active Substance: LITHIUM CITRATE
     Dosage: 15 ML, DAILY (600MG)
     Route: 065
  49. LITHIUM CITRATE [Concomitant]
     Active Substance: LITHIUM CITRATE
     Dosage: 15 ML, DAILY (15ML (600 MG) NOCTE, QD15 MILLILITER, QD)
     Route: 005
  50. LITHIUM CITRATE [Concomitant]
     Active Substance: LITHIUM CITRATE
     Dosage: 1 DOSAGE FORM, DAILY (1 DF, QD (PM)
     Route: 005
  51. VALPROIC ACID [Concomitant]
     Active Substance: VALPROIC ACID
     Indication: Product used for unknown indication
     Dosage: 25 MMOL, DAILY
  52. VALPROIC ACID [Concomitant]
     Active Substance: VALPROIC ACID
     Dosage: 18.75 MMOL, DAILY

REACTIONS (9)
  - White blood cell count increased [Recovered/Resolved]
  - Neutrophil count increased [Recovered/Resolved]
  - Abnormal behaviour [Unknown]
  - Aggression [Unknown]
  - Neutropenia [Recovered/Resolved]
  - Malaise [Unknown]
  - White blood cell count decreased [Recovered/Resolved]
  - Eosinophilia [Recovered/Resolved]
  - Drug ineffective [Unknown]

NARRATIVE: CASE EVENT DATE: 20180101
